FAERS Safety Report 6888874-6 (Version None)
Quarter: 2010Q3

REPORT INFORMATION
  Report Type: 
  Country: None (occurrence: None)
  Receive Date: 20100730
  Receipt Date: 20071115
  Transmission Date: 20110219
  Serious: No
  Sender: FDA-Public Use
  Company Number: US-PFIZER INC-2007096730

PATIENT
  Sex: Male

DRUGS (6)
  1. LIPITOR [Suspect]
     Indication: BLOOD CHOLESTEROL INCREASED
     Dates: start: 20071107, end: 20071115
  2. CHANTIX [Suspect]
     Indication: SMOKING CESSATION THERAPY
     Dates: start: 20071107, end: 20071115
  3. ENALAPRIL [Concomitant]
  4. METOPROLOL TARTRATE [Concomitant]
  5. VITAMINS [Concomitant]
  6. ANTITHROMBOTIC AGENTS [Concomitant]

REACTIONS (1)
  - RASH [None]
